FAERS Safety Report 9441125 (Version 1)
Quarter: 2013Q3

REPORT INFORMATION
  Report Type: Spontaneous
  Country: GB (occurrence: None)
  Receive Date: 20130801
  Receipt Date: 20130801
  Transmission Date: 20140515
  Serious: Yes (Hospitalization, Other)
  Sender: FDA-Public Use
  Company Number: AUR-APL-2013-06290

PATIENT
  Age: 86 Year
  Sex: Female

DRUGS (5)
  1. AMOXICILLIN (AMOXICILLIN) [Suspect]
     Indication: LOWER RESPIRATORY TRACT INFECTION
     Dosage: 750 MG (250 MG, 3 IN 1 D) ORAL
     Route: 048
     Dates: start: 20110323, end: 20110329
  2. ASPIRIN (ACETYLSALICYLIC ACID) [Concomitant]
  3. FELODIPINE (FELODIPINE) [Concomitant]
  4. GTN (GLYCERYL TRINITRATE) [Concomitant]
  5. PARACETAMOL (PARACETAMOL) [Concomitant]

REACTIONS (4)
  - Dyspnoea [None]
  - Hypophagia [None]
  - Wheezing [None]
  - Crepitations [None]
